FAERS Safety Report 10756235 (Version 1)
Quarter: 2015Q1

REPORT INFORMATION
  Report Type: Spontaneous
  Country: US (occurrence: US)
  Receive Date: 20150202
  Receipt Date: 20150202
  Transmission Date: 20150721
  Serious: No
  Sender: FDA-Public Use
  Company Number: US-BAUSCH-SYM-2013-13855

PATIENT
  Age: 46 Year
  Sex: Male

DRUGS (1)
  1. XENAZINE [Suspect]
     Active Substance: TETRABENAZINE
     Indication: CHOREA
     Dosage: ONE AND ONE HALF TABLET
     Route: 048
     Dates: start: 20131017

REACTIONS (1)
  - Nail bed disorder [Not Recovered/Not Resolved]

NARRATIVE: CASE EVENT DATE: 20131017
